FAERS Safety Report 14601595 (Version 3)
Quarter: 2018Q1

REPORT INFORMATION
  Report Type: Spontaneous
  Country: JP (occurrence: JP)
  Receive Date: 20180306
  Receipt Date: 20180324
  Transmission Date: 20180509
  Serious: Yes (Death, Hospitalization, Other)
  Sender: FDA-Public Use
  Company Number: JP-ROCHE-2079135

PATIENT
  Age: 72 Year
  Sex: Female
  Weight: 70 kg

DRUGS (18)
  1. MAGMITT [Concomitant]
     Active Substance: MAGNESIUM OXIDE
     Route: 048
  2. ATARAX-P [Concomitant]
     Active Substance: HYDROXYZINE HYDROCHLORIDE
     Route: 030
  3. FENTOS [Concomitant]
     Active Substance: FENTANYL
     Route: 065
  4. CALONAL [Concomitant]
     Active Substance: ACETAMINOPHEN
     Route: 048
  5. TSUMURA CHOREITO EXTRACT GRANULES (UNK INGREDIENTS) [Concomitant]
     Route: 048
  6. ROPION [Concomitant]
     Active Substance: FLURBIPROFEN AXETIL
     Route: 065
  7. SILECE [Concomitant]
     Active Substance: FLUNITRAZEPAM
     Route: 042
  8. RIZE (JAPAN) [Concomitant]
     Route: 048
  9. XELODA [Suspect]
     Active Substance: CAPECITABINE
     Indication: COLON CANCER
     Dosage: 2 WEEKS ADMINISTRATION FOLLOWED BY 1 WEEK REST
     Route: 048
     Dates: start: 20170302, end: 20171220
  10. AVASTIN [Concomitant]
     Active Substance: BEVACIZUMAB
     Indication: COLON CANCER
     Dosage: DOSAGE IS UNCERTAIN.
     Route: 041
     Dates: start: 20170302, end: 20170323
  11. SENNOSIDE [Concomitant]
     Active Substance: SENNOSIDES
     Route: 048
  12. OXALIPLATIN. [Concomitant]
     Active Substance: OXALIPLATIN
     Indication: COLON CANCER
     Dosage: DOSAGE IS UNCERTAIN.
     Route: 041
     Dates: start: 20170302, end: 20170323
  13. TRAZENTA [Concomitant]
     Active Substance: LINAGLIPTIN
     Route: 048
  14. AMARYL [Concomitant]
     Active Substance: GLIMEPIRIDE
     Route: 048
  15. OXINORM (JAPAN) [Concomitant]
     Active Substance: OXYCODONE HYDROCHLORIDE
     Route: 065
  16. LIXIANA [Concomitant]
     Active Substance: EDOXABAN TOSYLATE
     Route: 048
     Dates: start: 20170427
  17. GASMOTIN [Concomitant]
     Active Substance: MOSAPRIDE CITRATE
     Route: 048
  18. PENTAGIN [Concomitant]
     Active Substance: PENTAZOCINE HYDROCHLORIDE
     Route: 030

REACTIONS (7)
  - Oedema peripheral [Not Recovered/Not Resolved]
  - Nausea [Unknown]
  - Colon cancer [Fatal]
  - Diarrhoea [Unknown]
  - Lymphadenopathy [Not Recovered/Not Resolved]
  - Ascites [Unknown]
  - Thrombosis [Not Recovered/Not Resolved]

NARRATIVE: CASE EVENT DATE: 20171207
